FAERS Safety Report 22660736 (Version 1)
Quarter: 2023Q2

REPORT INFORMATION
  Report Type: Report from Study
  Country: US (occurrence: US)
  Receive Date: 20230630
  Receipt Date: 20230630
  Transmission Date: 20230721
  Serious: Yes (Other)
  Sender: FDA-Public Use
  Company Number: US-JAZZ PHARMACEUTICALS-2023-US-000713

PATIENT
  Age: 39 Year
  Sex: Male

DRUGS (1)
  1. EPIDIOLEX [Suspect]
     Active Substance: CANNABIDIOL
     Indication: Product used for unknown indication
     Dosage: 11.6 MILLILITER, 30 DAYS

REACTIONS (4)
  - Neoplasm malignant [Unknown]
  - Aphasia [Unknown]
  - Product administration interrupted [Unknown]
  - Visual impairment [Unknown]

NARRATIVE: CASE EVENT DATE: 20230111
